FAERS Safety Report 11983623 (Version 1)
Quarter: 2016Q1

REPORT INFORMATION
  Report Type: Spontaneous
  Country: CH (occurrence: PT)
  Receive Date: 20160201
  Receipt Date: 20160201
  Transmission Date: 20160526
  Serious: Yes (Other)
  Sender: FDA-Public Use
  Company Number: CH-LPDUSPRD-20160069

PATIENT
  Age: 85 Year
  Sex: Female

DRUGS (2)
  1. FERINJECT [Suspect]
     Active Substance: FERRIC CARBOXYMALTOSE
     Dosage: 1000 MG
     Route: 042
     Dates: start: 20120712, end: 20120712
  2. ASPIRIN. [Concomitant]
     Active Substance: ASPIRIN
     Dosage: DOSE NOT PROVIDED
     Route: 065

REACTIONS (1)
  - Polycythaemia [Unknown]

NARRATIVE: CASE EVENT DATE: 20141129
